FAERS Safety Report 17209850 (Version 3)
Quarter: 2020Q1

REPORT INFORMATION
  Report Type: Spontaneous
  Country: HR (occurrence: HR)
  Receive Date: 20191227
  Receipt Date: 20200218
  Transmission Date: 20200409
  Serious: Yes (Hospitalization)
  Sender: FDA-Public Use
  Company Number: HR-CELGENEUS-HRV-20191208791

PATIENT
  Age: 74 Year
  Sex: Male
  Weight: 64 kg

DRUGS (34)
  1. LAMOTRIGINE. [Concomitant]
     Active Substance: LAMOTRIGINE
     Indication: EPILEPSY
     Dosage: 25 MILLIGRAM
     Route: 048
     Dates: start: 1987
  2. WARFARIN [Concomitant]
     Active Substance: WARFARIN
     Indication: ARTERIAL BYPASS OCCLUSION
     Dosage: DEPENDING ON INR VALUES (3 MG)
     Route: 048
     Dates: start: 20180809
  3. G-CSF [Concomitant]
     Active Substance: GRANULOCYTE COLONY-STIMULATING FACTOR NOS
     Dosage: 300 MILLIGRAM
     Route: 058
     Dates: start: 20191112, end: 20191114
  4. SINERSUL FORTE [Concomitant]
     Active Substance: SULFAMETHOXAZOLE\TRIMETHOPRIM
     Indication: ANTIBIOTIC PROPHYLAXIS
     Dosage: 800 + 160 MG
     Route: 048
     Dates: start: 20191029
  5. VENETOCLAX. [Concomitant]
     Active Substance: VENETOCLAX
     Dosage: 200 MILLIGRAM
     Route: 048
     Dates: start: 20180529, end: 20180529
  6. VENETOCLAX. [Concomitant]
     Active Substance: VENETOCLAX
     Dosage: 400 MILLIGRAM
     Route: 048
     Dates: start: 20200107
  7. ACETYLSALICYLIC ACID [Concomitant]
     Active Substance: ASPIRIN
     Indication: ACUTE CORONARY SYNDROME
     Dosage: 100 MILLIGRAM
     Route: 048
     Dates: start: 20180613
  8. ACETYLSALICYLIC ACID [Concomitant]
     Active Substance: ASPIRIN
     Indication: PROPHYLAXIS
  9. FUROSEMIDE. [Concomitant]
     Active Substance: FUROSEMIDE
     Indication: PROPHYLAXIS
     Dosage: 80 MILLIGRAM
     Route: 041
     Dates: start: 20180612, end: 20180625
  10. VENETOCLAX. [Concomitant]
     Active Substance: VENETOCLAX
     Dosage: 400 MILLIGRAM
     Route: 048
     Dates: start: 20180530, end: 20190407
  11. RANITIDINE. [Concomitant]
     Active Substance: RANITIDINE
     Indication: PROPHYLAXIS
     Dosage: 300 MILLIGRAM
     Route: 065
     Dates: start: 20180525
  12. DIAZEPAM. [Concomitant]
     Active Substance: DIAZEPAM
     Indication: SEIZURE
     Dosage: 2 MILLIGRAM
     Route: 048
     Dates: start: 2012
  13. BISOPROLOL [Concomitant]
     Active Substance: BISOPROLOL
     Indication: HEART RATE ABNORMAL
  14. ALLOPURINOL. [Concomitant]
     Active Substance: ALLOPURINOL
     Dosage: 100 MILLIGRAM
     Route: 048
     Dates: start: 20190517
  15. AZACITIDINE. [Suspect]
     Active Substance: AZACITIDINE
     Indication: ACUTE MYELOID LEUKAEMIA
     Dosage: 75 MILLIGRAM/SQ. METER
     Route: 058
     Dates: start: 20180528, end: 20191128
  16. AZACITIDINE. [Suspect]
     Active Substance: AZACITIDINE
     Dosage: 75 MILLIGRAM/SQ. METER
     Route: 058
     Dates: start: 20200107
  17. ALLOPURINOL. [Concomitant]
     Active Substance: ALLOPURINOL
     Indication: BLOOD URIC ACID INCREASED
     Dosage: 300 MILLIGRAM
     Route: 048
     Dates: start: 20180525, end: 20180604
  18. FUROSEMIDE. [Concomitant]
     Active Substance: FUROSEMIDE
     Indication: CARDIOVASCULAR EVENT PROPHYLAXIS
     Dosage: 20 MILLIGRAM
     Route: 041
     Dates: start: 20180528, end: 20180531
  19. VENETOCLAX. [Concomitant]
     Active Substance: VENETOCLAX
     Indication: ACUTE MYELOID LEUKAEMIA
     Dosage: 100 MILLIGRAM
     Route: 048
     Dates: start: 20180528, end: 20180528
  20. VENETOCLAX. [Concomitant]
     Active Substance: VENETOCLAX
     Dosage: 200 MILLIGRAM
     Route: 048
     Dates: start: 20190605, end: 20191212
  21. BISOPROLOL [Concomitant]
     Active Substance: BISOPROLOL
     Indication: ATRIAL FIBRILLATION
     Dosage: 1.25 MILLIGRAM
     Route: 048
     Dates: start: 20180612
  22. CLOPIDOGREL [Concomitant]
     Active Substance: CLOPIDOGREL BISULFATE
     Indication: ACUTE MYOCARDIAL INFARCTION
     Dosage: 75 MILLIGRAM
     Route: 048
     Dates: start: 20180613
  23. G-CSF [Concomitant]
     Active Substance: GRANULOCYTE COLONY-STIMULATING FACTOR NOS
     Indication: NEUTROPENIA
     Dosage: 300 MILLIGRAM
     Route: 058
     Dates: start: 20190822, end: 20190825
  24. FUROSEMIDE. [Concomitant]
     Active Substance: FUROSEMIDE
     Indication: CARDIAC FAILURE
     Dosage: 60 MILLIGRAM
     Route: 048
     Dates: start: 20180626
  25. PREGABALINE [Concomitant]
     Active Substance: PREGABALIN
     Indication: RESTLESS LEGS SYNDROME
     Dosage: 150 MILLIGRAM
     Route: 048
     Dates: start: 201212
  26. MARTEFARIN [Concomitant]
     Active Substance: WARFARIN
     Indication: PLATELET AGGREGATION ABNORMAL
     Route: 048
     Dates: start: 20190325
  27. ALLOPURINOL. [Concomitant]
     Active Substance: ALLOPURINOL
     Indication: PROPHYLAXIS
     Dosage: 300 MILLIGRAM
     Route: 048
     Dates: start: 20190507, end: 20190516
  28. FUROSEMIDE. [Concomitant]
     Active Substance: FUROSEMIDE
     Indication: ATRIAL FIBRILLATION
  29. 5% GLUCOSE IN WATER [Concomitant]
     Indication: PROPHYLAXIS
     Dosage: 6.5 LITERS
     Route: 041
     Dates: start: 20180525, end: 20180603
  30. VENETOCLAX. [Concomitant]
     Active Substance: VENETOCLAX
     Dosage: 200 MILLIGRAM
     Route: 048
     Dates: start: 20190416, end: 20190506
  31. TAMSULOSINE [Concomitant]
     Active Substance: TAMSULOSIN HYDROCHLORIDE
     Indication: BENIGN PROSTATIC HYPERPLASIA
     Dosage: .4 MILLIGRAM
     Route: 048
     Dates: start: 2009
  32. FLUCONAZOL [Concomitant]
     Active Substance: FLUCONAZOLE
     Indication: LOWER RESPIRATORY TRACT INFECTION FUNGAL
     Dosage: 300 MILLIGRAM
     Route: 048
     Dates: start: 20190415
  33. SINERSUL FORTE [Concomitant]
     Active Substance: SULFAMETHOXAZOLE\TRIMETHOPRIM
     Indication: INFECTION PROPHYLAXIS
     Dosage: 400+80 MG
     Route: 048
     Dates: start: 20190522, end: 20190612
  34. NORMAL SALINE SOLUTION [Concomitant]
     Indication: PROPHYLAXIS
     Dosage: 11 LITERS
     Route: 041
     Dates: start: 20180525, end: 20180604

REACTIONS (2)
  - Proteus infection [Recovered/Resolved]
  - Klebsiella sepsis [Recovered/Resolved]

NARRATIVE: CASE EVENT DATE: 20191212
